FAERS Safety Report 20623724 (Version 1)
Quarter: 2022Q1

REPORT INFORMATION
  Report Type: Spontaneous
  Country: KR (occurrence: KR)
  Receive Date: 20220322
  Receipt Date: 20220322
  Transmission Date: 20220423
  Serious: Yes (Hospitalization, Other)
  Sender: FDA-Public Use
  Company Number: KR-009507513-2108KOR007633

PATIENT
  Age: 56 Year
  Sex: Female
  Weight: 53.5 kg

DRUGS (18)
  1. KEYTRUDA [Suspect]
     Active Substance: PEMBROLIZUMAB
     Dosage: 200 MILLIGRAM, EVERY 3 WEEKS (Q3W)
     Route: 042
     Dates: start: 20200707, end: 20200707
  2. KEYTRUDA [Suspect]
     Active Substance: PEMBROLIZUMAB
     Dosage: 200 MILLIGRAM, EVERY 3 WEEKS (Q3W)
     Route: 042
     Dates: start: 20200729, end: 20200729
  3. KEYTRUDA [Suspect]
     Active Substance: PEMBROLIZUMAB
     Dosage: 200 MILLIGRAM, EVERY 3 WEEKS (Q3W)
     Route: 042
     Dates: start: 20200819, end: 20200819
  4. KEYTRUDA [Suspect]
     Active Substance: PEMBROLIZUMAB
     Dosage: 200 MILLIGRAM, EVERY 3 WEEKS (Q3W)
     Route: 042
     Dates: start: 20200909, end: 20200909
  5. KEYTRUDA [Suspect]
     Active Substance: PEMBROLIZUMAB
     Dosage: 200 MILLIGRAM, EVERY 3 WEEKS (Q3W)
     Route: 042
     Dates: start: 20201007, end: 20201007
  6. KEYTRUDA [Suspect]
     Active Substance: PEMBROLIZUMAB
     Dosage: 200 MILLIGRAM, EVERY 3 WEEKS (Q3W)
     Route: 042
     Dates: start: 20201028, end: 20201028
  7. KEYTRUDA [Suspect]
     Active Substance: PEMBROLIZUMAB
     Dosage: 200 MILLIGRAM, EVERY 3 WEEKS (Q3W)
     Route: 042
     Dates: start: 20201118, end: 20201118
  8. KEYTRUDA [Suspect]
     Active Substance: PEMBROLIZUMAB
     Dosage: 200 MILLIGRAM, EVERY 3 WEEKS (Q3W)
     Route: 042
     Dates: start: 20201209, end: 20201209
  9. KEYTRUDA [Suspect]
     Active Substance: PEMBROLIZUMAB
     Dosage: 200 MILLIGRAM, EVERY 3 WEEKS (Q3W)
     Route: 042
     Dates: start: 20201230, end: 20201230
  10. KEYTRUDA [Suspect]
     Active Substance: PEMBROLIZUMAB
     Dosage: 200 MILLIGRAM, EVERY 3 WEEKS (Q3W)
     Route: 042
     Dates: start: 20210120, end: 20210120
  11. CISPLATIN [Suspect]
     Active Substance: CISPLATIN
     Indication: Non-small cell lung cancer
     Dosage: 14 ML, FREQUENCY: 1. STRENTGH 10 MG/20ML
     Route: 042
     Dates: start: 20200707, end: 20200707
  12. CISPLATIN [Suspect]
     Active Substance: CISPLATIN
     Indication: Non-small cell lung cancer
     Dosage: 200 ML, FREQUENCY: 1. STRENGTH 50MG/100ML
     Route: 042
     Dates: start: 20200707, end: 20200707
  13. CISPLATIN [Suspect]
     Active Substance: CISPLATIN
     Dosage: 182 ML, FREQUENCY: 1. STRENGTH 50MG/100ML
     Route: 042
     Dates: start: 20200729, end: 20201028
  14. PACLITAXEL [Suspect]
     Active Substance: PACLITAXEL
     Indication: Non-small cell lung cancer
     Dosage: 44.667 MILLILITER, FREQUENCY: 1. STRENGHT 30MG/5ML
     Route: 042
     Dates: start: 20200707, end: 20200707
  15. PACLITAXEL [Suspect]
     Active Substance: PACLITAXEL
     Dosage: 35.5 MILLILITER, FREQUENCY: 1. STRENGHT 30MG/5ML
     Route: 042
     Dates: start: 20200729, end: 20200909
  16. PACLITAXEL [Suspect]
     Active Substance: PACLITAXEL
     Dosage: 2.167 MILLILITER, FREQUENCY: 1. STRENGHT 30MG/5ML
     Route: 042
     Dates: start: 20201007, end: 20201028
  17. PACLITAXEL [Suspect]
     Active Substance: PACLITAXEL
     Indication: Non-small cell lung cancer
     Dosage: 33.4 MILLILITER, FREQUENCY: 1, STRENGTH 100MG/16.7ML
     Route: 042
     Dates: start: 20201007, end: 20201028
  18. STILLEN [Concomitant]
     Indication: Gastritis prophylaxis
     Dosage: 90 MILLIGRAM (1 TABLET), BID
     Route: 048
     Dates: start: 20200620, end: 20200713

REACTIONS (8)
  - Febrile neutropenia [Recovered/Resolved]
  - Neuropathy peripheral [Recovered/Resolved]
  - Urticaria [Recovered/Resolved]
  - Mucosal inflammation [Recovered/Resolved]
  - Decreased appetite [Recovered/Resolved]
  - Diarrhoea [Recovered/Resolved]
  - Inappropriate schedule of product administration [Unknown]
  - Inappropriate schedule of product administration [Unknown]

NARRATIVE: CASE EVENT DATE: 20200715
